FAERS Safety Report 19936213 (Version 1)
Quarter: 2021Q4

REPORT INFORMATION
  Report Type: Spontaneous
  Country: US (occurrence: US)
  Receive Date: 20211008
  Receipt Date: 20211008
  Transmission Date: 20220303
  Serious: Yes (Death, Life-Threatening, Hospitalization, Other)
  Sender: FDA-Public Use
  Company Number: US-ALBIREO AB-2021ALB000080

PATIENT
  Age: 2 Year
  Sex: Male
  Weight: 16.2 kg

DRUGS (1)
  1. BYLVAY [Suspect]
     Active Substance: ODEVIXIBAT
     Indication: Off label use
     Route: 048

REACTIONS (2)
  - Sepsis [Fatal]
  - Off label use [Unknown]
